FAERS Safety Report 21967818 (Version 1)
Quarter: 2023Q1

REPORT INFORMATION
  Report Type: Other
  Country: US (occurrence: US)
  Receive Date: 20230208
  Receipt Date: 20230208
  Transmission Date: 20230417
  Serious: No
  Sender: FDA-Public Use
  Company Number: US-TRAVERE-2022TVT00421

PATIENT
  Age: 4 Year
  Sex: Male

DRUGS (12)
  1. CHOLIC ACID [Suspect]
     Active Substance: CHOLIC ACID
     Indication: Cerebrohepatorenal syndrome
     Dosage: 50 MG, AS DIRECTED
     Route: 048
     Dates: start: 20200826
  2. KEPPRA [Concomitant]
     Active Substance: LEVETIRACETAM
  3. MELATONIN [Concomitant]
     Active Substance: MELATONIN
  4. FLONASE ALLERGY RELIEF [Concomitant]
     Active Substance: FLUTICASONE PROPIONATE
  5. CHILDRENS TYLENOL [Concomitant]
     Active Substance: ACETAMINOPHEN
  6. SINGULAIR [Concomitant]
     Active Substance: MONTELUKAST SODIUM
  7. FERROUS SULFATE [Concomitant]
     Active Substance: FERROUS SULFATE
  8. Multivitamin Infant + Toddler [Concomitant]
  9. VITAMIN E ACETATE [Concomitant]
     Active Substance: .ALPHA.-TOCOPHEROL ACETATE
  10. Iron Chews Pediatric [Concomitant]
  11. DIAZEPAM [Concomitant]
     Active Substance: DIAZEPAM
  12. GABAPENTIN [Concomitant]
     Active Substance: GABAPENTIN

REACTIONS (1)
  - Hypophagia [Unknown]
